FAERS Safety Report 5035622-0 (Version None)
Quarter: 2006Q2

REPORT INFORMATION
  Report Type: 
  Country: None (occurrence: None)
  Receive Date: 20060627
  Receipt Date: 20060523
  Transmission Date: 20061013
  Serious: Yes (Life-Threatening)
  Sender: FDA-Public Use
  Company Number: PL-GLAXOSMITHKLINE-B0425770A

PATIENT
  Sex: Female

DRUGS (1)
  1. FORTUM CEFTAZIDIME [Suspect]
     Indication: DRUG USE FOR UNKNOWN INDICATION
     Dosage: 315MG UNKNOWN
     Route: 042
     Dates: start: 20060506, end: 20060515

REACTIONS (5)
  - HYPOTENSION [None]
  - METABOLIC ACIDOSIS [None]
  - RESPIRATORY ARREST [None]
  - SHOCK [None]
  - TACHYCARDIA [None]
